FAERS Safety Report 9380161 (Version 2)
Quarter: 2013Q3

REPORT INFORMATION
  Report Type: Spontaneous
  Country: US (occurrence: US)
  Receive Date: 20130702
  Receipt Date: 20130708
  Transmission Date: 20140515
  Serious: Yes (Death, Other)
  Sender: FDA-Public Use
  Company Number: US-ROXANE LABORATORIES, INC.-2013-RO-01082RO

PATIENT
  Age: 26 Year
  Sex: Male
  Weight: 73 kg

DRUGS (2)
  1. METHADONE [Suspect]
  2. XANAX [Suspect]
     Route: 045

REACTIONS (5)
  - Toxicity to various agents [Fatal]
  - Overdose [Fatal]
  - Brain oedema [Unknown]
  - Bronchopneumonia [Unknown]
  - Pulmonary oedema [Unknown]
